FAERS Safety Report 7843412-6 (Version None)
Quarter: 2011Q4

REPORT INFORMATION
  Report Type: 
  Country: None (occurrence: None)
  Receive Date: 20111025
  Receipt Date: 20111012
  Transmission Date: 20120403
  Serious: Yes (Hospitalization)
  Sender: FDA-Public Use
  Company Number: IN-ELI_LILLY_AND_COMPANY-IN200910000696

PATIENT
  Sex: Female
  Weight: 60 kg

DRUGS (10)
  1. ATORVASTATIN CALCIUM [Concomitant]
     Dates: start: 20090712
  2. CROCIN [Concomitant]
     Dates: start: 20090926, end: 20090926
  3. VINFLUNINE [Suspect]
     Dosage: 280 MG/M2, ON D1 EVERY 3 WEEKS
     Route: 042
     Dates: start: 20090915
  4. GRANISETRON [Concomitant]
     Dates: start: 20090923, end: 20090924
  5. GEMCITABINE HYDROCHLORIDE [Suspect]
     Indication: BREAST CANCER METASTATIC
     Dosage: 1000 MG/M2, ON D1 AND D8 EVERY 3 WEEKS
     Route: 042
     Dates: start: 20090612
  6. VINFLUNINE [Suspect]
     Indication: BREAST CANCER METASTATIC
     Dosage: 320 MG/M2, ON D1 EVERY 3 WEEKS
     Route: 042
     Dates: start: 20090612
  7. GEMCITABINE HYDROCHLORIDE [Suspect]
     Dosage: 750 MG/M2, ON D1 AND D8 EVERY 3 WEEKS
     Route: 042
     Dates: start: 20090922
  8. NITROLONG [Concomitant]
     Dates: start: 20090610
  9. METOPROLOL TARTRATE [Concomitant]
     Dates: start: 20090721
  10. PANTOPRAZOLE [Concomitant]
     Dates: start: 20090923, end: 20090925

REACTIONS (4)
  - SOFT TISSUE INFECTION [None]
  - LEUKOPENIA [None]
  - ANAEMIA [None]
  - NEUTROPENIA [None]
